FAERS Safety Report 15754959 (Version 6)
Quarter: 2020Q3

REPORT INFORMATION
  Report Type: Spontaneous
  Country: JP (occurrence: JP)
  Receive Date: 20181224
  Receipt Date: 20200806
  Transmission Date: 20201102
  Serious: Yes (Hospitalization, Disabling, Other)
  Sender: FDA-Public Use
  Company Number: JP-009507513-1811JPN002486J

PATIENT
  Age: 72 Year
  Sex: Male
  Weight: 58 kg

DRUGS (1)
  1. KEYTRUDA [Suspect]
     Active Substance: PEMBROLIZUMAB
     Indication: LUNG ADENOCARCINOMA STAGE IV
     Dosage: 200 MILLIGRAM, Q3W
     Route: 041
     Dates: start: 20180605, end: 20181018

REACTIONS (9)
  - Type 1 diabetes mellitus [Recovered/Resolved with Sequelae]
  - Rash [Recovered/Resolved]
  - Lymph node pain [Recovering/Resolving]
  - Diabetic ketoacidosis [Recovered/Resolved with Sequelae]
  - Loss of consciousness [Unknown]
  - Adrenal insufficiency [Recovered/Resolved with Sequelae]
  - Diarrhoea [Recovered/Resolved]
  - Rheumatoid arthritis [Not Recovered/Not Resolved]
  - Blood pressure decreased [Not Recovered/Not Resolved]

NARRATIVE: CASE EVENT DATE: 20180816
